FAERS Safety Report 19331103 (Version 2)
Quarter: 2021Q2

REPORT INFORMATION
  Report Type: Spontaneous
  Country: PT (occurrence: PT)
  Receive Date: 20210528
  Receipt Date: 20210611
  Transmission Date: 20210717
  Serious: Yes (Life-Threatening)
  Sender: FDA-Public Use
  Company Number: PT-ASTRAZENECA-2021A461067

PATIENT
  Age: 66 Year
  Sex: Female

DRUGS (5)
  1. CEFUROXIMA RATIOPHARM [Concomitant]
     Indication: INFECTION
     Route: 048
  2. FORXIGA [Suspect]
     Active Substance: DAPAGLIFLOZIN
     Indication: DIABETES MELLITUS
     Dosage: AT BREAKFAST
     Route: 048
  3. ADALAT CC [Concomitant]
     Active Substance: NIFEDIPINE
     Dosage: AT BREAKFAST
     Route: 048
  4. TRIFLUSAL [Concomitant]
     Active Substance: TRIFLUSAL
     Dosage: AT BREAKFAST
     Route: 048
  5. BISOPROLOL [Concomitant]
     Active Substance: BISOPROLOL
     Dosage: AT BREAKFAST
     Route: 048

REACTIONS (6)
  - Weight decreased [Not Recovered/Not Resolved]
  - Hyperglycaemia [Recovered/Resolved]
  - Infection [Recovered/Resolved]
  - Blood cholesterol abnormal [Not Recovered/Not Resolved]
  - Renal impairment [Not Recovered/Not Resolved]
  - Hepatic function abnormal [Not Recovered/Not Resolved]
